FAERS Safety Report 6335982-4 (Version None)
Quarter: 2009Q3

REPORT INFORMATION
  Report Type: 
  Country: None (occurrence: None)
  Receive Date: 20090831
  Receipt Date: 20090831
  Transmission Date: 20100115
  Serious: Yes (Other)
  Sender: FDA-Public Use
  Company Number: None

PATIENT
  Age: 18 Year
  Sex: Male
  Weight: 97.5234 kg

DRUGS (2)
  1. XYREM [Suspect]
     Indication: NARCOLEPSY
     Dosage: 3.75 MG TWICE NIGHTLY PO
     Route: 048
     Dates: start: 20090717, end: 20090819
  2. XYREM [Suspect]
     Indication: NARCOLEPSY
     Dosage: 3.75 MG TWICE NIGHTLY PO
     Route: 048
     Dates: start: 20090824, end: 20090827

REACTIONS (2)
  - DRUG EFFECT DECREASED [None]
  - PRURITUS [None]
